FAERS Safety Report 14033418 (Version 1)
Quarter: 2017Q4

REPORT INFORMATION
  Report Type: Spontaneous
  Country: US (occurrence: US)
  Receive Date: 20171002
  Receipt Date: 20171002
  Transmission Date: 20180321
  Serious: Yes (Other)
  Sender: FDA-Public Use
  Company Number: None

PATIENT
  Sex: Female
  Weight: 102.15 kg

DRUGS (10)
  1. OMEPRAZOLE. [Concomitant]
     Active Substance: OMEPRAZOLE
  2. OXCARBAMAZEPINE [Concomitant]
     Active Substance: OXCARBAZEPINE
  3. BUPROPION. [Concomitant]
     Active Substance: BUPROPION
  4. RANTINIDINE [Concomitant]
  5. MEDICAL MARIJUANA [Concomitant]
     Active Substance: CANNABIS SATIVA SUBSP. INDICA TOP
  6. XELJANZ [Suspect]
     Active Substance: TOFACITINIB CITRATE
     Indication: RHEUMATOID ARTHRITIS
     Dosage: ?          QUANTITY:1 TABLET(S);?
     Route: 048
     Dates: start: 20170926, end: 20171002
  7. PANATROPAZOL [Concomitant]
  8. NAPROXEN. [Concomitant]
     Active Substance: NAPROXEN
  9. NORETHINDRONE. [Concomitant]
     Active Substance: NORETHINDRONE
  10. CLONAZEPAM. [Concomitant]
     Active Substance: CLONAZEPAM

REACTIONS (1)
  - Muscle spasms [None]

NARRATIVE: CASE EVENT DATE: 20170926
